FAERS Safety Report 7626313-8 (Version None)
Quarter: 2011Q3

REPORT INFORMATION
  Report Type: 
  Country: None (occurrence: None)
  Receive Date: 20110721
  Receipt Date: 20110715
  Transmission Date: 20111222
  Serious: Yes (Death, Other)
  Sender: FDA-Public Use
  Company Number: PHFR2011GB02752

PATIENT
  Sex: Female

DRUGS (1)
  1. CLOZAPINE [Suspect]
     Indication: SCHIZOPHRENIA
     Dates: start: 20030916, end: 20110415

REACTIONS (4)
  - DEATH [None]
  - BLOOD TRIGLYCERIDES INCREASED [None]
  - SYNCOPE [None]
  - MYOCARDIAL INFARCTION [None]
